FAERS Safety Report 8986318 (Version 1)
Quarter: 2012Q4

REPORT INFORMATION
  Report Type: Spontaneous
  Country: US (occurrence: None)
  Receive Date: 20121106
  Receipt Date: 20121106
  Transmission Date: 20130627
  Serious: Yes (Hospitalization)
  Sender: FDA-Public Use
  Company Number: 2012-3956

PATIENT
  Age: 12 Year
  Sex: Male

DRUGS (2)
  1. INCRELEX [Suspect]
     Indication: PRIMARY INSULIN LIKE GROWTH FACTOR-1 DEFICIENCY
     Dosage: 78 units (78 units, 1 in 1 D), Parenteral
     Route: 051
     Dates: end: 20120811
  2. INCRELEX [Suspect]
     Indication: PRIMARY INSULIN LIKE GROWTH FACTOR-1 DEFICIENCY
     Dosage: 235 mcg/kg (235 ug/kg, 1 in 1 D), Parenteral
     Route: 051
     Dates: start: 20101105

REACTIONS (1)
  - Convulsion [None]
